FAERS Safety Report 5697613-6 (Version None)
Quarter: 2008Q2

REPORT INFORMATION
  Report Type: 
  Country: None (occurrence: None)
  Receive Date: 20080408
  Receipt Date: 20080404
  Transmission Date: 20081010
  Serious: Yes (Life-Threatening)
  Sender: FDA-Public Use
  Company Number: ES-ASTRAZENECA-2008AC00776

PATIENT
  Age: 40 Year
  Sex: Male
  Weight: 87 kg

DRUGS (1)
  1. SEROQUEL [Suspect]
     Indication: SCHIZOPHRENIA, PARANOID TYPE
     Route: 048
     Dates: start: 20080204, end: 20080328

REACTIONS (2)
  - CONDITION AGGRAVATED [None]
  - SUICIDE ATTEMPT [None]
